FAERS Safety Report 4306431-2 (Version None)
Quarter: 2004Q1

REPORT INFORMATION
  Report Type: 
  Country: None (occurrence: None)
  Receive Date: 20040225
  Receipt Date: 20030626
  Transmission Date: 20041129
  Serious: No
  Sender: FDA-Public Use
  Company Number: US-BRISTOL-MYERS SQUIBB COMPANY-12325163

PATIENT
  Age: 79 Year
  Sex: Female
  Weight: 68 kg

DRUGS (2)
  1. EXCEDRIN (MIGRAINE) [Suspect]
     Indication: ARTHRALGIA
     Route: 048
  2. MULTI-VITAMIN [Concomitant]

REACTIONS (3)
  - ANOREXIA [None]
  - NAUSEA [None]
  - STOMACH DISCOMFORT [None]
